FAERS Safety Report 4388495-3 (Version None)
Quarter: 2004Q2

REPORT INFORMATION
  Report Type: 
  Country: None (occurrence: None)
  Receive Date: 20040624
  Receipt Date: 20040614
  Transmission Date: 20050107
  Serious: Yes (Death)
  Sender: FDA-Public Use
  Company Number: GB-JNJFOC-20040502446

PATIENT
  Sex: Male

DRUGS (1)
  1. REMICADE [Suspect]
     Indication: PULMONARY FIBROSIS
     Dosage: 1 VIAL ADMINISTERED

REACTIONS (1)
  - GENERAL PHYSICAL HEALTH DETERIORATION [None]
